FAERS Safety Report 25095547 (Version 1)
Quarter: 2025Q1

REPORT INFORMATION
  Report Type: Spontaneous
  Country: US (occurrence: US)
  Receive Date: 20250319
  Receipt Date: 20250319
  Transmission Date: 20250409
  Serious: Yes (Death, Life-Threatening, Congenital Anomaly, Other)
  Sender: SANOFI AVENTIS
  Company Number: US-SANOFI-02429906

PATIENT
  Age: 96 Year
  Sex: Female

DRUGS (10)
  1. AMBIEN [Suspect]
     Active Substance: ZOLPIDEM TARTRATE
     Dosage: UNK UNK, HS
     Route: 004
     Dates: start: 2023, end: 20231010
  2. ZALEPLON [Suspect]
     Active Substance: ZALEPLON
  3. ESZOPICLONE [Suspect]
     Active Substance: ESZOPICLONE
  4. RAMELTEON [Suspect]
     Active Substance: RAMELTEON
  5. MELATONIN [Suspect]
     Active Substance: MELATONIN
  6. VALIUM [Suspect]
     Active Substance: DIAZEPAM
  7. ATIVAN [Suspect]
     Active Substance: LORAZEPAM
  8. RESTORIL [Suspect]
     Active Substance: TEMAZEPAM
  9. METHOCARBAMOL [Suspect]
     Active Substance: METHOCARBAMOL
  10. DIPHENHYDRAMINE [Suspect]
     Active Substance: DIPHENHYDRAMINE

REACTIONS (2)
  - Overdose [Fatal]
  - Cardiac arrest [Fatal]

NARRATIVE: CASE EVENT DATE: 20231010
